FAERS Safety Report 9781072 (Version 1)
Quarter: 2013Q4

REPORT INFORMATION
  Report Type: Spontaneous
  Country: FR (occurrence: FR)
  Receive Date: 20131224
  Receipt Date: 20131224
  Transmission Date: 20140711
  Serious: Yes (Hospitalization)
  Sender: FDA-Public Use
  Company Number: PHHY2013FR148828

PATIENT
  Age: 71 Year
  Sex: Male

DRUGS (11)
  1. EUCREAS [Suspect]
     Dosage: ONCE DAILY
     Route: 048
     Dates: end: 20130904
  2. SPIRONOLACTONE [Suspect]
     Dosage: UNK UKN, UNK
     Dates: start: 201308
  3. SPIRONOLACTONE [Suspect]
     Dosage: 50 MG, UNK
     Route: 048
     Dates: end: 20130904
  4. PRAVASTATIN [Suspect]
     Dosage: 40 MG, QD
     Route: 048
     Dates: end: 20130904
  5. RABEPRAZOLE [Suspect]
     Dosage: 10 MG, QD
     Route: 048
     Dates: end: 20130904
  6. IRBESARTAN HYDROCHLOROTHIAZIDE ZENTIVA [Suspect]
     Dosage: 1 DF, QD (300 MG IRBE AND 25 MG HYDRO)
     Route: 048
     Dates: end: 20130904
  7. COMBODART [Suspect]
     Dosage: ONCE DAILY
     Route: 048
     Dates: end: 20130904
  8. METFORMIN [Concomitant]
  9. VERAPAMIL [Concomitant]
     Dosage: 240 MG, UNK
  10. SINGULAIR [Concomitant]
     Dosage: 10 (UNIT UNSPECIFIED)
  11. SERETIDE [Concomitant]

REACTIONS (3)
  - Hyperkalaemia [Recovered/Resolved]
  - Bradycardia [Recovered/Resolved]
  - Conduction disorder [Recovered/Resolved]
